FAERS Safety Report 20424279 (Version 1)
Quarter: 2022Q1

REPORT INFORMATION
  Report Type: Spontaneous
  Country: CH (occurrence: IT)
  Receive Date: 20220203
  Receipt Date: 20220203
  Transmission Date: 20220423
  Serious: Yes (Other)
  Sender: FDA-Public Use
  Company Number: CH-EXELIXIS-CABO-21040999

PATIENT

DRUGS (2)
  1. CABOMETYX [Suspect]
     Active Substance: CABOZANTINIB S-MALATE
     Indication: Transitional cell carcinoma
     Dosage: 40 MG, QD
     Route: 048
     Dates: start: 201909
  2. DURVALUMAB [Suspect]
     Active Substance: DURVALUMAB
     Indication: Transitional cell carcinoma
     Dosage: 1500 MG, Q4WEEKS
     Route: 042
     Dates: start: 201909, end: 202006

REACTIONS (1)
  - Fistula of small intestine [Unknown]
